FAERS Safety Report 25746640 (Version 1)
Quarter: 2025Q3

REPORT INFORMATION
  Report Type: Report from Study
  Country: US (occurrence: US)
  Receive Date: 20250901
  Receipt Date: 20250901
  Transmission Date: 20251021
  Serious: No
  Sender: SUNOVION
  Company Number: US-SUMITOMO PHARMA SWITZERLAND GMBH-2025SPA010850

PATIENT
  Age: 74 Year
  Sex: Male

DRUGS (10)
  1. ORGOVYX [Suspect]
     Active Substance: RELUGOLIX
     Indication: Prostate cancer
     Route: 048
     Dates: start: 20250710, end: 20250710
  2. ORGOVYX [Suspect]
     Active Substance: RELUGOLIX
     Route: 048
  3. ASPIRIN [Concomitant]
     Active Substance: ASPIRIN
  4. ATORVASTATIN [Concomitant]
     Active Substance: ATORVASTATIN
  5. CARVEDILOL [Concomitant]
     Active Substance: CARVEDILOL
  6. TADALAFIL [Concomitant]
     Active Substance: TADALAFIL
  7. NIFEDIPINE [Concomitant]
     Active Substance: NIFEDIPINE
  8. MAGNESIUM [Concomitant]
     Active Substance: MAGNESIUM
  9. SHILAJIT [Concomitant]
     Active Substance: FULVIC ACID
  10. OXCARBAZEPINE [Concomitant]
     Active Substance: OXCARBAZEPINE

REACTIONS (3)
  - Mood swings [Unknown]
  - Localised infection [Unknown]
  - Hot flush [Unknown]
